FAERS Safety Report 10008002 (Version 1)
Quarter: 2014Q1

REPORT INFORMATION
  Report Type: Spontaneous
  Country: US (occurrence: US)
  Receive Date: 20140313
  Receipt Date: 20140313
  Transmission Date: 20141002
  Serious: Yes (Hospitalization)
  Sender: FDA-Public Use
  Company Number: US-ABBVIE-14P-163-1209574-00

PATIENT
  Age: 16 Year
  Sex: Male
  Weight: 58.11 kg

DRUGS (3)
  1. HUMIRA [Suspect]
     Indication: CROHN^S DISEASE
     Dosage: ONCE
     Dates: start: 201209, end: 201209
  2. HUMIRA [Suspect]
     Dosage: ONCE
     Dates: start: 201209, end: 201209
  3. HUMIRA [Suspect]
     Dates: start: 201210

REACTIONS (9)
  - C-reactive protein increased [Unknown]
  - Red blood cell sedimentation rate increased [Unknown]
  - Diarrhoea [Not Recovered/Not Resolved]
  - Diarrhoea [Recovered/Resolved]
  - Clostridium difficile infection [Recovered/Resolved]
  - Rash [Not Recovered/Not Resolved]
  - Anal skin tags [Recovered/Resolved]
  - Influenza [Recovered/Resolved]
  - Off label use [Not Recovered/Not Resolved]
